FAERS Safety Report 16610290 (Version 1)
Quarter: 2019Q3

REPORT INFORMATION
  Report Type: Spontaneous
  Country: US (occurrence: US)
  Receive Date: 20190607
  Receipt Date: 20190607
  Transmission Date: 20191004
  Serious: No
  Sender: FDA-Public Use
  Company Number: None

PATIENT
  Age: 53 Year
  Sex: Female

DRUGS (7)
  1. ASPIRIN. [Concomitant]
     Active Substance: ASPIRIN
  2. TOPROL XL [Concomitant]
     Active Substance: METOPROLOL SUCCINATE
  3. VITAMIN D [Concomitant]
     Active Substance: VITAMIN D NOS
  4. OCALIVA [Suspect]
     Active Substance: OBETICHOLIC ACID
     Indication: DRUG THERAPY
     Dosage: ?          OTHER FREQUENCY:Q MON + FRI;?
     Route: 048
     Dates: start: 20190517
  5. ALBUTEROL. [Concomitant]
     Active Substance: ALBUTEROL
  6. CARDURA [Concomitant]
     Active Substance: DOXAZOSIN MESYLATE
  7. XANAX [Concomitant]
     Active Substance: ALPRAZOLAM

REACTIONS (2)
  - Diarrhoea [None]
  - Headache [None]

NARRATIVE: CASE EVENT DATE: 20190603
